FAERS Safety Report 8595717-1 (Version None)
Quarter: 2012Q3

REPORT INFORMATION
  Report Type: 
  Country: None (occurrence: None)
  Receive Date: 20120815
  Receipt Date: 20120809
  Transmission Date: 20120928
  Serious: Yes (Hospitalization)
  Sender: FDA-Public Use
  Company Number: PHHY2012JP067284

PATIENT
  Age: 28 Year
  Sex: Male

DRUGS (2)
  1. CLINDAMYCIN PHOSPHATE [Concomitant]
  2. CEFTRIAXONE [Suspect]
     Indication: INFECTION PROPHYLAXIS
     Dosage: 4 G, DAILY DOSE
     Dates: start: 20120725, end: 20120731

REACTIONS (1)
  - CHOLELITHIASIS [None]
